FAERS Safety Report 7287579-X (Version None)
Quarter: 2011Q1

REPORT INFORMATION
  Report Type: 
  Country: None (occurrence: None)
  Receive Date: 20110208
  Receipt Date: 20110208
  Transmission Date: 20110831
  Serious: Yes (Other)
  Sender: FDA-Public Use
  Company Number: None

PATIENT
  Age: 23 Year
  Sex: Female
  Weight: 79.8331 kg

DRUGS (1)
  1. ELMIRON [Suspect]
     Indication: CYSTITIS
     Dosage: 100MG 3 TIMES DAILY PO
     Route: 048

REACTIONS (2)
  - FLUID RETENTION [None]
  - SWELLING [None]
